FAERS Safety Report 10180523 (Version 1)
Quarter: 2014Q2

REPORT INFORMATION
  Report Type: Spontaneous
  Country: US (occurrence: US)
  Receive Date: 20140519
  Receipt Date: 20140519
  Transmission Date: 20141212
  Serious: No
  Sender: FDA-Public Use
  Company Number: US-MYLANLABS-2013S1014465

PATIENT
  Sex: Female

DRUGS (8)
  1. BUPROPION HYDROCHLORIDE EXTENDED-RELEASE TABLETS USP, (SR) [Suspect]
     Indication: DEPRESSION
     Route: 048
     Dates: end: 201007
  2. IRON [Concomitant]
  3. VITAMIN B12 [Concomitant]
  4. VITAMIN D [Concomitant]
  5. NORVASC [Concomitant]
  6. CELEBREX [Concomitant]
  7. VYTORIN [Concomitant]
  8. ATENOLOL [Concomitant]

REACTIONS (2)
  - Drug ineffective [Recovered/Resolved]
  - Depression [Recovered/Resolved]
